FAERS Safety Report 4335234-8 (Version None)
Quarter: 2004Q2

REPORT INFORMATION
  Report Type: 
  Country: None (occurrence: None)
  Receive Date: 20040406
  Receipt Date: 20031216
  Transmission Date: 20050107
  Serious: Yes (Other)
  Sender: FDA-Public Use
  Company Number: 354332

PATIENT
  Age: 56 Year
  Sex: Male

DRUGS (1)
  1. FUZEON [Suspect]
     Indication: HIV INFECTION
     Dosage: 90 MG  2 PER DAY  SUBCUTANEOUS
     Route: 058
     Dates: start: 20030701

REACTIONS (1)
  - OBSTRUCTION [None]
